FAERS Safety Report 4549137-7 (Version None)
Quarter: 2004Q4

REPORT INFORMATION
  Report Type: 
  Country: None (occurrence: None)
  Receive Date: 20041227
  Receipt Date: 20041129
  Transmission Date: 20050328
  Serious: No
  Sender: FDA-Public Use
  Company Number: 04P-163-0251092-00

PATIENT
  Age: 50 Year
  Sex: Female
  Weight: 104.3273 kg

DRUGS (3)
  1. HUMIRA [Suspect]
     Indication: RHEUMATOID ARTHRITIS
     Dosage: 40 MG, 1 IN 2 WK, SUBCUTANEOUS
     Route: 058
     Dates: start: 20040209
  2. HYDROCHLOROTHIAZIDE [Concomitant]
  3. SERTARLINE HYDROCHLORIDE [Concomitant]

REACTIONS (1)
  - INJECTION SITE HAEMORRHAGE [None]
